FAERS Safety Report 5914513-4 (Version None)
Quarter: 2008Q4

REPORT INFORMATION
  Report Type: 
  Country: None (occurrence: None)
  Receive Date: 20081008
  Receipt Date: 20080925
  Transmission Date: 20090506
  Serious: Yes (Other)
  Sender: FDA-Public Use
  Company Number: DSU-2008-01540

PATIENT

DRUGS (2)
  1. OLMESARTAN MEDOXOMIL [Suspect]
     Indication: DRUG USE FOR UNKNOWN INDICATION
     Dosage: 40 MG (40 MG, QD) ,PER ORAL
     Route: 048
  2. RENITEC (ENALAPRIL) (ENALAPRIL) [Concomitant]

REACTIONS (2)
  - HYPOTENSION [None]
  - SYNCOPE [None]
